FAERS Safety Report 19370606 (Version 2)
Quarter: 2021Q3

REPORT INFORMATION
  Report Type: Other
  Country: US (occurrence: US)
  Receive Date: 20210604
  Receipt Date: 20210701
  Transmission Date: 20211014
  Serious: Yes (Hospitalization)
  Sender: FDA-Public Use
  Company Number: US-INTERCEPT-PM2021001825

PATIENT
  Sex: Female

DRUGS (3)
  1. OCALIVA [Suspect]
     Active Substance: OBETICHOLIC ACID
     Indication: PRIMARY BILIARY CHOLANGITIS
     Dosage: 5 MILLIGRAM, QD
     Route: 048
     Dates: start: 20180718
  2. OCALIVA [Suspect]
     Active Substance: OBETICHOLIC ACID
     Dosage: 10 MILLIGRAM, QD
     Route: 048
  3. OCALIVA [Suspect]
     Active Substance: OBETICHOLIC ACID
     Dosage: 5 MILLIGRAM, 2 TABLETS PER WEEK
     Route: 048

REACTIONS (1)
  - Hospitalisation [Unknown]
